FAERS Safety Report 4437052-9 (Version None)
Quarter: 2004Q3

REPORT INFORMATION
  Report Type: 
  Country: None (occurrence: None)
  Receive Date: 20040830
  Receipt Date: 19970102
  Transmission Date: 20050211
  Serious: Yes (Death, Life-Threatening, Hospitalization)
  Sender: FDA-Public Use
  Company Number: GB-GLAXOSMITHKLINE-B0197787B

PATIENT
  Age: 1 Year
  Sex: Female

DRUGS (2)
  1. AUGMENTIN '125' [Suspect]
  2. FLOXAPEN [Suspect]

REACTIONS (1)
  - HEPATITIS NEONATAL [None]
